FAERS Safety Report 23558411 (Version 1)
Quarter: 2024Q1

REPORT INFORMATION
  Report Type: Spontaneous
  Country: PT (occurrence: PT)
  Receive Date: 20240223
  Receipt Date: 20240223
  Transmission Date: 20240409
  Serious: Yes (Other)
  Sender: FDA-Public Use
  Company Number: PT-009507513-2402PRT006945

PATIENT
  Age: 62 Year
  Sex: Male

DRUGS (2)
  1. PEMBROLIZUMAB [Suspect]
     Active Substance: PEMBROLIZUMAB
     Indication: Squamous cell carcinoma of lung
  2. PLATINUM [Suspect]
     Active Substance: PLATINUM
     Indication: Squamous cell carcinoma of lung

REACTIONS (1)
  - Tumour pseudoprogression [Unknown]
